FAERS Safety Report 6490510-8 (Version None)
Quarter: 2009Q4

REPORT INFORMATION
  Report Type: 
  Country: None (occurrence: None)
  Receive Date: 20091211
  Receipt Date: 20091030
  Transmission Date: 20100525
  Serious: No
  Sender: FDA-Public Use
  Company Number: US-BAYER-200917422BCC

PATIENT
  Age: 30 Year
  Sex: Female

DRUGS (2)
  1. ALEVE (CAPLET) [Suspect]
     Indication: PAIN
     Dosage: UNIT DOSE: 220 MG
     Route: 048
     Dates: start: 20091029
  2. INHALER FOR ASTHMA [Concomitant]
     Indication: ASTHMA
     Route: 065

REACTIONS (1)
  - NO ADVERSE EVENT [None]
